FAERS Safety Report 25322386 (Version 2)
Quarter: 2025Q3

REPORT INFORMATION
  Report Type: Report from Study
  Country: US (occurrence: US)
  Receive Date: 20250516
  Receipt Date: 20250901
  Transmission Date: 20251021
  Serious: No
  Sender: DECIPHERA PHARMACEUTICALS
  Company Number: US-DECIPHERA PHARMACEUTICALS LLC-2025US000463

PATIENT
  Age: 75 Year
  Sex: Female
  Weight: 82.086 kg

DRUGS (4)
  1. QINLOCK [Suspect]
     Active Substance: RIPRETINIB
     Indication: Gastrointestinal stromal tumour
     Dosage: 50 MILLIGRAM, QD
     Route: 048
     Dates: start: 20210721, end: 202504
  2. QINLOCK [Suspect]
     Active Substance: RIPRETINIB
     Indication: Soft tissue sarcoma
     Dosage: 50 MILLIGRAM, QD
     Route: 048
     Dates: start: 2025, end: 2025
  3. QINLOCK [Suspect]
     Active Substance: RIPRETINIB
     Indication: Malignant connective tissue neoplasm
     Dates: start: 2025, end: 2025
  4. QINLOCK [Suspect]
     Active Substance: RIPRETINIB
     Dates: start: 2025

REACTIONS (2)
  - Gastrointestinal disorder [Unknown]
  - Underdose [Unknown]

NARRATIVE: CASE EVENT DATE: 20210721
